FAERS Safety Report 21762700 (Version 4)
Quarter: 2023Q1

REPORT INFORMATION
  Report Type: Report from Study
  Country: US (occurrence: US)
  Receive Date: 20221221
  Receipt Date: 20230103
  Transmission Date: 20230418
  Serious: No
  Sender: FDA-Public Use
  Company Number: US-002147023-NVSC2022US293943

PATIENT
  Age: 7 Year
  Sex: Female
  Weight: 22 kg

DRUGS (3)
  1. ILARIS [Suspect]
     Active Substance: CANAKINUMAB
     Indication: Pyrexia
     Dosage: 50 MG, EVERY 4 WEEKS
     Route: 058
     Dates: start: 20210713
  2. ILARIS [Suspect]
     Active Substance: CANAKINUMAB
     Dosage: 50 MG, EVERY 4 WEEKS
     Route: 058
     Dates: start: 20221227
  3. ILARIS [Suspect]
     Active Substance: CANAKINUMAB
     Dosage: 40 MG, QMO
     Route: 058

REACTIONS (4)
  - Condition aggravated [Unknown]
  - Malaise [Unknown]
  - Vomiting [Unknown]
  - Product dose omission issue [Unknown]

NARRATIVE: CASE EVENT DATE: 20221218
